FAERS Safety Report 25929416 (Version 1)
Quarter: 2025Q4

REPORT INFORMATION
  Report Type: Spontaneous
  Country: US (occurrence: US)
  Receive Date: 20251016
  Receipt Date: 20251016
  Transmission Date: 20260118
  Serious: No
  Sender: AUROBINDO
  Company Number: US-AUROBINDO-AUR-APL-2025-036483

PATIENT
  Age: 71 Year
  Sex: Male
  Weight: 77.11 kg

DRUGS (1)
  1. PREGABALIN [Suspect]
     Active Substance: PREGABALIN
     Indication: Pain
     Dosage: UNK, ONCE A DAY
     Route: 048
     Dates: start: 20250702

REACTIONS (6)
  - Brain fog [Unknown]
  - Nightmare [Unknown]
  - Diarrhoea [Unknown]
  - Coordination abnormal [Unknown]
  - Gait disturbance [Unknown]
  - Drug ineffective [Unknown]
